FAERS Safety Report 7676690-7 (Version None)
Quarter: 2011Q3

REPORT INFORMATION
  Report Type: 
  Country: None (occurrence: None)
  Receive Date: 20110811
  Receipt Date: 20110805
  Transmission Date: 20111222
  Serious: Yes (Hospitalization, Other)
  Sender: FDA-Public Use
  Company Number: HU-PFIZER INC-2011180987

PATIENT
  Age: 67 Year
  Sex: Female
  Weight: 86 kg

DRUGS (10)
  1. XALATAN [Suspect]
     Dosage: 1 DROP, 1X/DAY
     Route: 047
     Dates: start: 20110601, end: 20110601
  2. SYNCUMAR [Concomitant]
     Dosage: UNK
     Route: 048
     Dates: start: 20080101
  3. FUROSEMIDE [Concomitant]
     Dosage: UNK
     Route: 048
     Dates: start: 20070101
  4. KALIUM [Concomitant]
     Dosage: UNK
     Route: 048
     Dates: start: 20070101
  5. ATORVASTATIN [Concomitant]
     Dosage: 20 MG, UNK
     Route: 048
     Dates: start: 20110101
  6. TENAXUM [Concomitant]
     Dosage: 1 MG, UNK
     Route: 048
     Dates: start: 20080101
  7. NITROMINT [Concomitant]
     Dosage: UNK
     Dates: start: 20110101
  8. CORDAFLEX [Concomitant]
     Dosage: UNK, AS NEEDED
  9. MILURIT [Concomitant]
     Dosage: 100 MG, UNK
     Route: 048
     Dates: start: 20110101
  10. IRBESARTAN AND HYDROCHLOROTHIAZIDE [Concomitant]
     Dosage: 300 MG, UNK
     Route: 048
     Dates: start: 20080101

REACTIONS (1)
  - BLOOD PRESSURE INCREASED [None]
